FAERS Safety Report 6905462-3 (Version None)
Quarter: 2010Q3

REPORT INFORMATION
  Report Type: 
  Country: None (occurrence: None)
  Receive Date: 20100804
  Receipt Date: 20100722
  Transmission Date: 20110219
  Serious: Yes (Hospitalization)
  Sender: FDA-Public Use
  Company Number: PHHY2010GR48304

PATIENT
  Age: 56 Year
  Sex: Female

DRUGS (5)
  1. CERTICAN [Suspect]
     Indication: IMMUNOSUPPRESSION
     Dosage: 2 MG, QD
     Route: 048
     Dates: start: 20100129, end: 20100303
  2. MEDROL [Concomitant]
     Indication: IMMUNOSUPPRESSION
     Dosage: 12MG
     Dates: start: 20100129
  3. MEDROL [Concomitant]
     Dosage: 8 MG
     Route: 048
     Dates: start: 20100223
  4. PROGRAF [Concomitant]
     Indication: IMMUNOSUPPRESSION
     Dosage: 3 MG
     Dates: start: 20100207
  5. NEORAL [Concomitant]
     Indication: IMMUNOSUPPRESSION
     Dosage: 150 MG
     Dates: start: 20100225

REACTIONS (2)
  - POST PROCEDURAL URINE LEAK [None]
  - URETERONEOCYSTOSTOMY [None]
